FAERS Safety Report 4663676-X (Version None)
Quarter: 2005Q2

REPORT INFORMATION
  Report Type: 
  Country: None (occurrence: None)
  Receive Date: 20050517
  Receipt Date: 20050505
  Transmission Date: 20051028
  Serious: Yes (Hospitalization, Other)
  Sender: FDA-Public Use
  Company Number: 05-05-0797

PATIENT
  Age: 57 Year
  Sex: Female

DRUGS (8)
  1. CYCLOSPORINE [Suspect]
     Indication: HEART TRANSPLANT
     Dosage: 65MG BID ORAL
     Route: 048
  2. PLAVIX [Suspect]
     Dosage: 75 MG QD
  3. LIPITOR [Suspect]
     Dosage: 80MG QD ORAL
     Route: 048
  4. IMURAN [Concomitant]
  5. PREDNISONE [Concomitant]
  6. LISINOPRIL [Concomitant]
  7. APO-ALLOPURINOL [Concomitant]
  8. FUROSEMIDE [Concomitant]

REACTIONS (2)
  - DRUG INTERACTION [None]
  - RHABDOMYOLYSIS [None]
